FAERS Safety Report 15291676 (Version 1)
Quarter: 2018Q4

REPORT INFORMATION
  Report Type: Spontaneous
  Country: DZ (occurrence: DZ)
  Receive Date: 20180817
  Receipt Date: 20180817
  Transmission Date: 20190204
  Serious: Yes (Hospitalization)
  Sender: FDA-Public Use
  Company Number: DZ-BAUSCH-BL-2018-016709

PATIENT
  Age: 15 Year
  Sex: Male

DRUGS (2)
  1. \ANASTROZOLE TABLET 1 MG ZYDUS PHARMACEUTICALS [Suspect]
     Active Substance: ANASTROZOLE
     Indication: EYE INJURY
  2. CARTEOL LP 2% [Suspect]
     Active Substance: CARTEOLOL HYDROCHLORIDE
     Indication: HYPERTONIA
     Route: 047
     Dates: start: 201804, end: 2018

REACTIONS (3)
  - Product use issue [Recovered/Resolved]
  - Tachycardia [Recovered/Resolved]
  - Hypertension [Recovered/Resolved]

NARRATIVE: CASE EVENT DATE: 2018
